FAERS Safety Report 5814705-9 (Version None)
Quarter: 2008Q3

REPORT INFORMATION
  Report Type: 
  Country: None (occurrence: None)
  Receive Date: 20080718
  Receipt Date: 20080514
  Transmission Date: 20090109
  Serious: No
  Sender: FDA-Public Use
  Company Number: US-KINGPHARMUSA00001-K200800556

PATIENT

DRUGS (4)
  1. LEVOXYL [Suspect]
     Indication: THYROID DISORDER
     Dosage: 112 MCG, UNK
     Dates: start: 19980101, end: 20050101
  2. LEVOXYL [Suspect]
     Dosage: 125 MCG, QD
     Route: 048
     Dates: start: 20050101
  3. PHENOBARBITAL TAB [Concomitant]
  4. LEXAPRO [Concomitant]

REACTIONS (2)
  - ALOPECIA [None]
  - HAIR DISORDER [None]
